FAERS Safety Report 16608920 (Version 1)
Quarter: 2019Q3

REPORT INFORMATION
  Report Type: Spontaneous
  Country: PL (occurrence: PL)
  Receive Date: 20190722
  Receipt Date: 20190722
  Transmission Date: 20191004
  Serious: Yes (Other)
  Sender: FDA-Public Use
  Company Number: PL-BAYER-2019-135739

PATIENT
  Age: 60 Year
  Sex: Male
  Weight: 90 kg

DRUGS (1)
  1. ULTRAVIST [Suspect]
     Active Substance: IOPROMIDE
     Dosage: 85 ML, UNK
     Route: 042

REACTIONS (2)
  - Suffocation feeling [Unknown]
  - Throat tightness [Unknown]

NARRATIVE: CASE EVENT DATE: 20151209
